FAERS Safety Report 9815006 (Version 1)
Quarter: 2014Q1

REPORT INFORMATION
  Report Type: Spontaneous
  Country: US (occurrence: US)
  Receive Date: 20140114
  Receipt Date: 20140114
  Transmission Date: 20141002
  Serious: Yes (Death)
  Sender: FDA-Public Use
  Company Number: US-ROCHE-1332913

PATIENT
  Age: 55 Year
  Sex: Male
  Weight: 73.09 kg

DRUGS (1)
  1. XELODA [Suspect]
     Indication: PANCREATIC CARCINOMA
     Dosage: 3AM + 4PM  FOR 7 DAYS
     Route: 048
     Dates: start: 20130607

REACTIONS (1)
  - Death [Fatal]
